FAERS Safety Report 22698018 (Version 2)
Quarter: 2024Q3

REPORT INFORMATION
  Report Type: Spontaneous
  Country: US (occurrence: US)
  Receive Date: 20230712
  Receipt Date: 20240815
  Transmission Date: 20241017
  Serious: No
  Sender: PFIZER
  Company Number: US-PFIZER INC-PV202300117652

PATIENT
  Age: 69 Year
  Sex: Female
  Weight: 91.247 kg

DRUGS (3)
  1. IBRANCE [Suspect]
     Active Substance: PALBOCICLIB
     Indication: Breast cancer female
     Dosage: 125 MG, CYCLIC (1 PO DAILY FOR 21 DAYS ON, OFF 7 DAYS FOR 28 DAY CYCLE)
     Route: 048
  2. IBRANCE [Suspect]
     Active Substance: PALBOCICLIB
     Indication: Breast cancer metastatic
  3. LETROZOLE [Suspect]
     Active Substance: LETROZOLE
     Dosage: UNK UNK, CYCLIC

REACTIONS (3)
  - Gastroenteritis viral [Recovering/Resolving]
  - White blood cell count abnormal [Unknown]
  - Amnesia [Not Recovered/Not Resolved]
